FAERS Safety Report 4376155-4 (Version None)
Quarter: 2004Q2

REPORT INFORMATION
  Report Type: 
  Country: None (occurrence: None)
  Receive Date: 20040607
  Receipt Date: 20040526
  Transmission Date: 20050107
  Serious: No
  Sender: FDA-Public Use
  Company Number: 04P-056-0247222-00

PATIENT
  Age: 75 Year
  Sex: Male

DRUGS (6)
  1. TRICOR [Suspect]
     Indication: HYPERCHOLESTEROLAEMIA
     Dosage: 200 MG, 1 IN 1 D, ORAL
     Route: 048
  2. TRICOR [Suspect]
     Indication: HYPERCHOLESTEROLAEMIA
     Dosage: 160 MG, 1 IN 1 D, PER ORAL
     Route: 048
     Dates: end: 20030101
  3. CLAVULIN (CLAVULIN) [Suspect]
  4. ACETYLSALICYLATE LYSINE [Concomitant]
  5. SECTRAL [Concomitant]
  6. AMLODIPINE BESYLATE [Concomitant]

REACTIONS (3)
  - BLOOD CREATINE PHOSPHOKINASE INCREASED [None]
  - DRUG INTERACTION [None]
  - LIVER DISORDER [None]
